FAERS Safety Report 16754197 (Version 1)
Quarter: 2019Q4

REPORT INFORMATION
  Report Type: Spontaneous
  Country: GB (occurrence: GB)
  Receive Date: 20190828
  Receipt Date: 20190828
  Transmission Date: 20200122
  Serious: Yes (Other)
  Sender: FDA-Public Use
  Company Number: None

PATIENT
  Age: 22 Year
  Sex: Female
  Weight: 69 kg

DRUGS (5)
  1. HYDROCORTISONE. [Suspect]
     Active Substance: HYDROCORTISONE
     Indication: DERMATITIS ATOPIC
     Route: 061
     Dates: start: 20090801, end: 20190828
  2. SYNALAR [Suspect]
     Active Substance: FLUOCINOLONE ACETONIDE
  3. HYDROCORTISONE. [Suspect]
     Active Substance: HYDROCORTISONE
     Indication: ECZEMA
     Route: 061
     Dates: start: 20090801, end: 20190828
  4. EUMOVATE [Suspect]
     Active Substance: CLOBETASONE BUTYRATE
  5. BETNOVATE [Suspect]
     Active Substance: BETAMETHASONE

REACTIONS (8)
  - Dry skin [None]
  - Pruritus [None]
  - Skin weeping [None]
  - Skin exfoliation [None]
  - Pain of skin [None]
  - Steroid withdrawal syndrome [None]
  - Rash macular [None]
  - Mental disorder [None]

NARRATIVE: CASE EVENT DATE: 20180813
